FAERS Safety Report 9306127 (Version 1)
Quarter: 2013Q2

REPORT INFORMATION
  Report Type: Spontaneous
  Country: FR (occurrence: FR)
  Receive Date: 20130523
  Receipt Date: 20130523
  Transmission Date: 20140414
  Serious: Yes (Death, Other)
  Sender: FDA-Public Use
  Company Number: FR-ROCHE-1227660

PATIENT
  Age: 59 Year
  Sex: Male
  Weight: 56 kg

DRUGS (5)
  1. PEGASYS [Suspect]
     Indication: HEPATITIS C
     Route: 058
     Dates: start: 20120918, end: 20130321
  2. COPEGUS [Suspect]
     Indication: HEPATITIS C
     Route: 048
     Dates: start: 20120918, end: 20130321
  3. COPEGUS [Suspect]
     Route: 048
     Dates: start: 20121030
  4. COPEGUS [Suspect]
     Route: 048
     Dates: start: 20130306
  5. VICTRELIS [Suspect]
     Indication: HEPATITIS C
     Route: 048
     Dates: start: 20121016, end: 20130321

REACTIONS (3)
  - Anaemia [Unknown]
  - Asthenia [Unknown]
  - Death [Fatal]
